FAERS Safety Report 8951318 (Version 1)
Quarter: 2012Q4

REPORT INFORMATION
  Report Type: 
  Country: CA (occurrence: CA)
  Receive Date: 20121207
  Receipt Date: 20121207
  Transmission Date: 20130627
  Serious: Yes (Hospitalization, Other)
  Sender: FDA-Public Use
  Company Number: PHHY2012CA111085

PATIENT
  Sex: Female
  Weight: 50 kg

DRUGS (2)
  1. AFINITOR [Suspect]
     Indication: PANCREATIC NEUROENDOCRINE TUMOUR METASTATIC
     Dosage: 10 mg, UNK
     Route: 048
     Dates: start: 20121004
  2. DOMPERIDONE [Concomitant]
     Dates: start: 20120725

REACTIONS (14)
  - Cardiac murmur [Unknown]
  - Pleural effusion [Unknown]
  - Cardiomyopathy [Unknown]
  - Blood glucose increased [Unknown]
  - Weight decreased [Recovering/Resolving]
  - Nasopharyngitis [Unknown]
  - Abdominal distension [Unknown]
  - Dyspepsia [Unknown]
  - Malaise [Unknown]
  - Oedema [Unknown]
  - Asthenia [Unknown]
  - Fatigue [Unknown]
  - Swelling [Unknown]
  - Dyspnoea [Unknown]
